FAERS Safety Report 6746984-8 (Version None)
Quarter: 2010Q2

REPORT INFORMATION
  Report Type: 
  Country: None (occurrence: None)
  Receive Date: 20100528
  Receipt Date: 20100520
  Transmission Date: 20101027
  Serious: Yes (Death)
  Sender: FDA-Public Use
  Company Number: US-ROCHE-705049

PATIENT
  Sex: Female
  Weight: 68.9 kg

DRUGS (1)
  1. CAPECITABINE [Suspect]
     Indication: DRUG USE FOR UNKNOWN INDICATION
     Dosage: DOSE: 1500 MG AM/PM
     Route: 048
     Dates: start: 20100302, end: 20100515

REACTIONS (1)
  - DEATH [None]
